FAERS Safety Report 21612252 (Version 3)
Quarter: 2023Q1

REPORT INFORMATION
  Report Type: Spontaneous
  Country: AR (occurrence: AR)
  Receive Date: 20221118
  Receipt Date: 20230209
  Transmission Date: 20230418
  Serious: No
  Sender: FDA-Public Use
  Company Number: AR-TOLMAR, INC.-22AR037450

PATIENT
  Sex: Male

DRUGS (1)
  1. ELIGARD [Suspect]
     Active Substance: LEUPROLIDE ACETATE
     Indication: Prostate cancer
     Dosage: 22.5 MILLIGRAM, Q 3 MONTH
     Dates: start: 20221108

REACTIONS (2)
  - Intercepted product administration error [Unknown]
  - Product contamination [Unknown]

NARRATIVE: CASE EVENT DATE: 20221108
